FAERS Safety Report 15287440 (Version 2)
Quarter: 2018Q3

REPORT INFORMATION
  Report Type: Spontaneous
  Country: JP (occurrence: JP)
  Receive Date: 20180817
  Receipt Date: 20180927
  Transmission Date: 20181010
  Serious: Yes (Hospitalization, Other)
  Sender: FDA-Public Use
  Company Number: JP-TAKEDA-2018TJP018111

PATIENT
  Age: 86 Year
  Sex: Female

DRUGS (8)
  1. BISONO [Concomitant]
     Active Substance: BISOPROLOL
     Dosage: UNK
     Route: 062
  2. LIVACT                             /00847901/ [Concomitant]
     Active Substance: ISOLEUCINE\LEUCINE\VALINE
     Dosage: 3 DF, UNK
     Route: 048
  3. PORTOLAC [Concomitant]
     Active Substance: LACTITOL
     Dosage: UNK
     Route: 048
  4. MAGNESIUM OXIDE. [Concomitant]
     Active Substance: MAGNESIUM OXIDE
     Dosage: UNK
     Route: 048
  5. SODIUM PICOSULFATE [Concomitant]
     Active Substance: SODIUM PICOSULFATE
     Dosage: UNK
     Route: 048
  6. TAKECAB TABLETS 20MG [Suspect]
     Active Substance: VONOPRAZAN FUMURATE
     Indication: GASTRITIS HAEMORRHAGIC
     Dosage: UNK
     Route: 048
     Dates: start: 2018
  7. LANSOPRAZOLE. [Concomitant]
     Active Substance: LANSOPRAZOLE
     Dosage: UNK
     Route: 048
  8. CALONAL [Concomitant]
     Active Substance: ACETAMINOPHEN
     Dosage: UNK
     Route: 065

REACTIONS (3)
  - Off label use [Unknown]
  - Hepatic encephalopathy [Recovered/Resolved]
  - Cardiac failure [Unknown]

NARRATIVE: CASE EVENT DATE: 2018
